FAERS Safety Report 15804350 (Version 1)
Quarter: 2019Q1

REPORT INFORMATION
  Report Type: Spontaneous
  Country: GB (occurrence: GB)
  Receive Date: 20190109
  Receipt Date: 20190109
  Transmission Date: 20190417
  Serious: Yes (Other)
  Sender: FDA-Public Use
  Company Number: GB-TEVA-2019-GB-996092

PATIENT
  Age: 66 Year
  Sex: Male
  Weight: 88 kg

DRUGS (14)
  1. DESLORATADINE. [Concomitant]
     Active Substance: DESLORATADINE
     Dosage: 1 DOSAGE FORMS DAILY;
     Dates: start: 20171010
  2. TIMOLOL. [Concomitant]
     Active Substance: TIMOLOL
     Dosage: 2 GTT DAILY; ONE DROP ONCE DAILY TO EACH EYE
     Dates: start: 20171010
  3. DERMOL [Concomitant]
     Active Substance: BENZALKONIUM CHLORIDE\CHLORHEXIDINE HYDROCHLORIDE\ISOPROPYL MYRISTATE\PARAFFIN
     Dosage: USE AS DIRECTED.
     Dates: start: 20171010
  4. COCOIS OINTMENT [Concomitant]
     Dosage: APPLY TO SCALP. AS DIRECTED.
     Dates: start: 20181204
  5. GAVISCON ADVANCE [Concomitant]
     Active Substance: POTASSIUM BICARBONATE\SODIUM ALGINATE
     Dosage: 20 ML DAILY; 3 TIMES A DAY AND 1 AT NIGHT.
     Dates: start: 20171010
  6. PERINDOPRIL TERT-BUTYLAMINE [Concomitant]
     Active Substance: PERINDOPRIL ERBUMINE
     Dosage: 1 DOSAGE FORMS DAILY;
     Dates: start: 20180622
  7. SIMVASTATIN. [Interacting]
     Active Substance: SIMVASTATIN
     Route: 065
  8. CETRABEN EMOLLIENT CREAM [Concomitant]
     Dosage: USE AS NEEDED
     Dates: start: 20171010
  9. BETAMETHASONE VALERATE. [Concomitant]
     Active Substance: BETAMETHASONE VALERATE
     Dosage: USE AS PER DERMATOLOGIST.
     Dates: start: 20171010, end: 20181204
  10. DICLOFENAC DIETHYLAMINE [Concomitant]
     Active Substance: DICLOFENAC DIETHYLAMINE
     Dosage: 3 DOSAGE FORMS DAILY; APPLY.
     Dates: start: 20171010
  11. OMEPRAZOLE. [Concomitant]
     Active Substance: OMEPRAZOLE
     Dosage: 2 DOSAGE FORMS DAILY;
     Dates: start: 20171010
  12. AMLODIPINE [Suspect]
     Active Substance: AMLODIPINE BESYLATE
     Dosage: 5 MILLIGRAM DAILY;
     Dates: start: 20171010
  13. FLUTICASONE PROPIONATE. [Concomitant]
     Active Substance: FLUTICASONE PROPIONATE
     Dosage: 2 DOSAGE FORMS DAILY; TO EACH NOSTRIL EACH MORNING.
     Route: 045
     Dates: start: 20171010
  14. CAPASAL [Concomitant]
     Dosage: USE DAILY.
     Dates: start: 20171010

REACTIONS (2)
  - Rash generalised [Recovered/Resolved]
  - Drug interaction [Unknown]

NARRATIVE: CASE EVENT DATE: 20181204
